FAERS Safety Report 8156630-7 (Version None)
Quarter: 2012Q1

REPORT INFORMATION
  Report Type: 
  Country: None (occurrence: None)
  Receive Date: 20120222
  Receipt Date: 20120210
  Transmission Date: 20120608
  Serious: Yes (Congenital Anomaly, Other)
  Sender: FDA-Public Use
  Company Number: DE-UCBSA-051559

PATIENT
  Age: 32 Year
  Sex: Female

DRUGS (5)
  1. MARCUMAR [Suspect]
     Indication: THROMBOSIS PROPHYLAXIS
     Dosage: 0-4 GESTATIONAL WEEK
     Route: 048
     Dates: end: 20100101
  2. ENOXAPARIN SODIUM [Suspect]
     Indication: THROMBOSIS PROPHYLAXIS
     Dosage: DAILY DOSE:40MG
     Route: 058
     Dates: start: 20100101
  3. FOLASAURE [Suspect]
     Indication: PROPHYLAXIS OF NEURAL TUBE DEFECT
     Dosage: 4-12 GESTATIONAL WEEK
     Route: 048
     Dates: start: 20100101, end: 20100101
  4. BETAMETHASONE [Suspect]
     Indication: MATERNAL THERAPY TO ENHANCE FOETAL LUNG MATURITY
     Dosage: 32.1-32.2 GESTATIONAL WEEK
     Route: 030
     Dates: start: 20110508, end: 20110509
  5. KEPPRA [Suspect]
     Indication: EPILEPSY
     Route: 048

REACTIONS (3)
  - PREGNANCY [None]
  - PREMATURE RUPTURE OF MEMBRANES [None]
  - PREMATURE DELIVERY [None]
